FAERS Safety Report 7420691-0 (Version None)
Quarter: 2011Q2

REPORT INFORMATION
  Report Type: 
  Country: None (occurrence: None)
  Receive Date: 20110418
  Receipt Date: 20101118
  Transmission Date: 20111010
  Serious: Yes (Hospitalization, Other)
  Sender: FDA-Public Use
  Company Number: US-BAYER-201022343NA

PATIENT
  Age: 31 Year
  Sex: Female
  Weight: 83.9 kg

DRUGS (5)
  1. YASMIN [Suspect]
     Indication: PREMENSTRUAL SYNDROME
     Dosage: UNK UNK, QD
     Route: 048
     Dates: start: 20010101, end: 20030101
  2. LEXAPRO [Concomitant]
  3. ASCORBIC ACID [Concomitant]
  4. ONDANSETRON [Concomitant]
  5. YASMIN [Suspect]
     Dosage: UNK
     Dates: start: 20070201, end: 20070525

REACTIONS (7)
  - DEPRESSION [None]
  - CHOLELITHIASIS [None]
  - CHOLECYSTITIS CHRONIC [None]
  - CHOLECYSTECTOMY [None]
  - PULMONARY EMBOLISM [None]
  - ANXIETY [None]
  - BILE DUCT STONE [None]
